FAERS Safety Report 8873818 (Version 1)
Quarter: 2012Q4

REPORT INFORMATION
  Report Type: 
  Country: SE (occurrence: SE)
  Receive Date: 20121030
  Receipt Date: 20121030
  Transmission Date: 20130627
  Serious: Yes (Hospitalization)
  Sender: FDA-Public Use
  Company Number: SE-VERTEX PHARMACEUTICAL INC.-2012-023596

PATIENT
  Age: 45 Year
  Sex: Male

DRUGS (4)
  1. INCIVO [Suspect]
     Indication: HEPATITIS C
     Dosage: Dosage Form: Tablet
     Route: 065
     Dates: start: 20120627, end: 20120725
  2. PEGASYS [Suspect]
     Indication: HEPATITIS C
     Route: 065
     Dates: start: 20120627, end: 20120725
  3. COPEGUS [Suspect]
     Indication: HEPATITIS C
     Route: 065
     Dates: start: 20120713, end: 20120725
  4. COPEGUS [Suspect]
     Dosage: 1200 mg, UNK
     Route: 065
     Dates: start: 20120627

REACTIONS (1)
  - Renal failure acute [Recovered/Resolved]
